FAERS Safety Report 6382171-3 (Version None)
Quarter: 2009Q3

REPORT INFORMATION
  Report Type: 
  Country: None (occurrence: None)
  Receive Date: 20090930
  Receipt Date: 20090924
  Transmission Date: 20100115
  Serious: Yes (Death, Other)
  Sender: FDA-Public Use
  Company Number: JP-AVENTIS-200912657JP

PATIENT
  Age: 78 Year
  Sex: Male

DRUGS (5)
  1. FUROSEMIDE [Suspect]
     Route: 048
  2. ALDACTONE [Suspect]
     Route: 048
  3. DIGOXIN [Suspect]
  4. CARPERITIDE [Concomitant]
     Route: 041
  5. DOBUTAMINE HCL [Concomitant]
     Route: 041

REACTIONS (3)
  - DEHYDRATION [None]
  - INTESTINAL ISCHAEMIA [None]
  - SHOCK [None]
